FAERS Safety Report 5656074-3 (Version None)
Quarter: 2008Q1

REPORT INFORMATION
  Report Type: 
  Country: None (occurrence: None)
  Receive Date: 20080307
  Receipt Date: 20080226
  Transmission Date: 20080703
  Serious: Yes (Other)
  Sender: FDA-Public Use
  Company Number: US-PFIZER INC-2008019764

PATIENT
  Sex: Male
  Weight: 98.636 kg

DRUGS (5)
  1. CHANTIX [Suspect]
     Indication: SMOKING CESSATION THERAPY
     Route: 048
  2. DILAUDID [Suspect]
     Indication: PAIN
     Dates: start: 20071001, end: 20071001
  3. OMEGA 3 [Concomitant]
  4. CALCIUM [Concomitant]
  5. VITAMIN E [Concomitant]

REACTIONS (7)
  - ANXIETY [None]
  - BLOOD TRIGLYCERIDES INCREASED [None]
  - HALLUCINATION [None]
  - MOOD SWINGS [None]
  - PAIN [None]
  - SURGERY [None]
  - WEIGHT INCREASED [None]
